FAERS Safety Report 22634736 (Version 1)
Quarter: 2023Q2

REPORT INFORMATION
  Report Type: Spontaneous
  Country: None (occurrence: CA)
  Receive Date: 20230623
  Receipt Date: 20230623
  Transmission Date: 20230722
  Serious: Yes (Hospitalization, Other)
  Sender: FDA-Public Use
  Company Number: CA-Ascend Therapeutics US, LLC-2143043

PATIENT
  Age: 53 Year
  Sex: Female

DRUGS (11)
  1. ESTROGEL [Suspect]
     Active Substance: ESTRADIOL
     Indication: Product used for unknown indication
     Route: 062
  2. ESTROGEL [Suspect]
     Active Substance: ESTRADIOL
     Route: 062
  3. PROMETRIUM [Suspect]
     Active Substance: PROGESTERONE
     Route: 065
  4. BUDESONIDE\FORMOTEROL FUMARATE DIHYDRATE [Suspect]
     Active Substance: BUDESONIDE\FORMOTEROL FUMARATE DIHYDRATE
     Route: 065
  5. LINOLEIC ACID, CONJUGATED [Suspect]
     Active Substance: LINOLEIC ACID, CONJUGATED
     Route: 048
  6. LORAZEPAM [Suspect]
     Active Substance: LORAZEPAM
     Route: 065
  7. MSM [Suspect]
     Active Substance: DIMETHYL SULFONE
     Route: 065
  8. VARENICLINE TARTRATE [Suspect]
     Active Substance: VARENICLINE TARTRATE
     Route: 065
  9. CHOLECALCIFEROL [Suspect]
     Active Substance: CHOLECALCIFEROL
     Route: 048
  10. VENLAFAXINE [Suspect]
     Active Substance: VENLAFAXINE HYDROCHLORIDE
     Route: 048
  11. BIFIDOBACTERIUM ANIMALIS LACTIS\LACTOBACILLUS ACIDOPHILUS [Suspect]
     Active Substance: BIFIDOBACTERIUM ANIMALIS LACTIS\LACTOBACILLUS ACIDOPHILUS
     Route: 048

REACTIONS (1)
  - Hepatotoxicity [Recovered/Resolved]
